FAERS Safety Report 14524968 (Version 1)
Quarter: 2018Q1

REPORT INFORMATION
  Report Type: Spontaneous
  Country: GB (occurrence: GB)
  Receive Date: 20180213
  Receipt Date: 20180213
  Transmission Date: 20180509
  Serious: Yes (Disabling, Other)
  Sender: FDA-Public Use
  Company Number: GB-ORION CORPORATION ORION PHARMA-TREX2018-0398

PATIENT
  Age: 33 Year
  Sex: Female

DRUGS (1)
  1. METHOTREXATE (TRADE NAME UNKNOWN) [Suspect]
     Active Substance: METHOTREXATE
     Indication: CATARACT
     Route: 065

REACTIONS (5)
  - Liver injury [Recovered/Resolved]
  - Juvenile idiopathic arthritis [Recovered/Resolved]
  - Drug ineffective for unapproved indication [Unknown]
  - Product use in unapproved indication [Unknown]
  - Alopecia [Recovered/Resolved]
